FAERS Safety Report 8202041-5 (Version None)
Quarter: 2012Q1

REPORT INFORMATION
  Report Type: 
  Country: None (occurrence: None)
  Receive Date: 20120312
  Receipt Date: 20120307
  Transmission Date: 20120608
  Serious: Yes (Hospitalization, Disabling, Other)
  Sender: FDA-Public Use
  Company Number: US-MERCK-1107USA03464

PATIENT
  Age: 50 Year
  Sex: Female
  Weight: 68 kg

DRUGS (8)
  1. FOSAMAX [Suspect]
     Route: 048
     Dates: start: 20010901, end: 20031201
  2. FOSAMAX [Suspect]
     Indication: PROPHYLAXIS
     Route: 048
     Dates: start: 19970801, end: 20010801
  3. OMEGA-3 MARINE TRIGLYCERIDES [Concomitant]
     Route: 065
     Dates: start: 19970101
  4. CALCIUM CITRATE [Concomitant]
     Route: 065
  5. VITAMINS (UNSPECIFIED) [Concomitant]
     Route: 065
  6. FOSAMAX [Suspect]
     Route: 048
     Dates: start: 20040101, end: 20050901
  7. TAMOXIFEN CITRATE [Suspect]
     Indication: BREAST CANCER
     Route: 065
     Dates: start: 19980301
  8. CALCIUM CITRATE [Concomitant]
     Route: 065
     Dates: start: 19800101

REACTIONS (54)
  - DYSPAREUNIA [None]
  - URINARY INCONTINENCE [None]
  - RENAL FAILURE [None]
  - INCREASED TENDENCY TO BRUISE [None]
  - HYPERTENSION [None]
  - HYPERCHOLESTEROLAEMIA [None]
  - OCCULT BLOOD POSITIVE [None]
  - PULMONARY FIBROSIS [None]
  - BREAST DISORDER [None]
  - DEPRESSION [None]
  - FUNGAL INFECTION [None]
  - IMPAIRED HEALING [None]
  - TUMOUR MARKER INCREASED [None]
  - ATYPICAL MYCOBACTERIAL INFECTION [None]
  - BONE METABOLISM DISORDER [None]
  - LOW TURNOVER OSTEOPATHY [None]
  - COLONIC POLYP [None]
  - GASTROINTESTINAL DISORDER [None]
  - BREAST NECROSIS [None]
  - TENDON DISORDER [None]
  - SCAR [None]
  - ASPARTATE AMINOTRANSFERASE INCREASED [None]
  - LEUKOPENIA [None]
  - HAIR GROWTH ABNORMAL [None]
  - FEMUR FRACTURE [None]
  - STRESS FRACTURE [None]
  - ADRENAL MASS [None]
  - GLOMERULAR FILTRATION RATE DECREASED [None]
  - LIBIDO DECREASED [None]
  - HYPERCALCAEMIA [None]
  - HERPES ZOSTER OPHTHALMIC [None]
  - BREAST FIBROSIS [None]
  - BONE DISORDER [None]
  - PNEUMONIA [None]
  - TUBERCULOSIS [None]
  - HYPERCALCIURIA [None]
  - FEBRILE NEUTROPENIA [None]
  - OSTEOPOROSIS [None]
  - ARTHRITIS [None]
  - ATROPHY [None]
  - HERPES ZOSTER [None]
  - LIVER FUNCTION TEST ABNORMAL [None]
  - CYSTITIS [None]
  - RENAL DISORDER [None]
  - ANAEMIA [None]
  - ANXIETY [None]
  - BLOOD CALCIUM INCREASED [None]
  - FOOT FRACTURE [None]
  - FOREIGN BODY REACTION [None]
  - OSTEOPENIA [None]
  - NOCTURIA [None]
  - LUNG NEOPLASM [None]
  - BLOOD CREATINE PHOSPHOKINASE INCREASED [None]
  - CLAVICLE FRACTURE [None]
